FAERS Safety Report 18359071 (Version 1)
Quarter: 2020Q4

REPORT INFORMATION
  Report Type: Spontaneous
  Country: FR (occurrence: FR)
  Receive Date: 20201008
  Receipt Date: 20201008
  Transmission Date: 20210114
  Serious: Yes (Other)
  Sender: FDA-Public Use
  Company Number: FR-TEVA-2020-FR-1835876

PATIENT
  Age: 62 Year
  Sex: Female

DRUGS (1)
  1. KETOPROFENE [Suspect]
     Active Substance: KETOPROFEN
     Indication: GAIT DISTURBANCE
     Dosage: 1 DOSAGE FORMS
     Route: 048
     Dates: start: 20200908, end: 20200908

REACTIONS (1)
  - Hepatitis acute [Recovering/Resolving]

NARRATIVE: CASE EVENT DATE: 20200909
